FAERS Safety Report 13436914 (Version 1)
Quarter: 2017Q2

REPORT INFORMATION
  Report Type: Spontaneous
  Country: US (occurrence: US)
  Receive Date: 20170413
  Receipt Date: 20170413
  Transmission Date: 20170830
  Serious: No
  Sender: FDA-Public Use
  Company Number: US-SA-2016SA212588

PATIENT
  Age: 48 Year
  Sex: Female
  Weight: 140 kg

DRUGS (1)
  1. ALLEGRA-D [Suspect]
     Active Substance: FEXOFENADINE\PSEUDOEPHEDRINE
     Indication: HYPERSENSITIVITY
     Route: 048
     Dates: start: 20161116

REACTIONS (9)
  - Sensitivity of teeth [Recovered/Resolved]
  - Upper-airway cough syndrome [Recovered/Resolved]
  - Condition aggravated [Recovered/Resolved]
  - Ear pain [Recovered/Resolved]
  - Palpitations [Recovered/Resolved]
  - Dyspnoea [Recovered/Resolved]
  - Head discomfort [Recovered/Resolved]
  - Laryngospasm [Recovered/Resolved]
  - Feeling abnormal [Recovered/Resolved]
